FAERS Safety Report 14595651 (Version 1)
Quarter: 2018Q1

REPORT INFORMATION
  Report Type: Spontaneous
  Country: US (occurrence: US)
  Receive Date: 20180303
  Receipt Date: 20180303
  Transmission Date: 20180509
  Serious: Yes (Other)
  Sender: FDA-Public Use
  Company Number: US-BRISTOL-MYERS SQUIBB COMPANY-BMS-2018-018165

PATIENT
  Age: 72 Year
  Sex: Male

DRUGS (1)
  1. ELIQUIS [Suspect]
     Active Substance: APIXABAN
     Indication: EMBOLISM VENOUS
     Dosage: ONE
     Route: 048
     Dates: start: 20180117

REACTIONS (8)
  - Contusion [Unknown]
  - Traumatic haemorrhage [Unknown]
  - Road traffic accident [Unknown]
  - Wound haemorrhage [Unknown]
  - Arthralgia [Unknown]
  - Animal bite [Unknown]
  - Neck pain [Unknown]
  - Musculoskeletal pain [Unknown]

NARRATIVE: CASE EVENT DATE: 20180216
